FAERS Safety Report 11183447 (Version 1)
Quarter: 2015Q2

REPORT INFORMATION
  Report Type: Report from Study
  Country: US (occurrence: US)
  Receive Date: 20150612
  Receipt Date: 20150612
  Transmission Date: 20150821
  Serious: Yes (Death, Other)
  Sender: FDA-Public Use
  Company Number: US-ROCHE-1561815

PATIENT

DRUGS (1)
  1. RITUXIMAB [Suspect]
     Active Substance: RITUXIMAB
     Indication: PROPHYLAXIS AGAINST TRANSPLANT REJECTION
     Dosage: MOST RECENT INFUSION RECEIVED ON 18/JAN/2013
     Route: 065

REACTIONS (16)
  - Glucose tolerance impaired [Not Recovered/Not Resolved]
  - Retroperitoneal haemorrhage [Recovered/Resolved]
  - Back pain [Recovered/Resolved]
  - Hypoaesthesia [Not Recovered/Not Resolved]
  - Syncope [Not Recovered/Not Resolved]
  - Anaemia [Recovered/Resolved]
  - Malignant neoplasm of unknown primary site [Fatal]
  - Pleural effusion [Not Recovered/Not Resolved]
  - Thyroiditis [Not Recovered/Not Resolved]
  - Dyspnoea exertional [Recovered/Resolved]
  - Dizziness [Not Recovered/Not Resolved]
  - Leukocytosis [Recovered/Resolved]
  - Dyspnoea [Not Recovered/Not Resolved]
  - Deep vein thrombosis [Recovered/Resolved]
  - Leukopenia [Recovered/Resolved]
  - Fatigue [Recovered/Resolved]

NARRATIVE: CASE EVENT DATE: 20130109
